FAERS Safety Report 13284672 (Version 2)
Quarter: 2017Q1

REPORT INFORMATION
  Report Type: Report from Study
  Country: US (occurrence: US)
  Receive Date: 20170301
  Receipt Date: 20170317
  Transmission Date: 20170428
  Serious: Yes (Other)
  Sender: FDA-Public Use
  Company Number: US-JAZZ-2017-US-001394

PATIENT
  Sex: Female

DRUGS (3)
  1. XYREM [Suspect]
     Active Substance: SODIUM OXYBATE
     Dosage: 3 G, BID
     Route: 048
     Dates: start: 2017
  2. VYVANSE [Suspect]
     Active Substance: LISDEXAMFETAMINE DIMESYLATE
     Indication: PRODUCT USED FOR UNKNOWN INDICATION
  3. XYREM [Suspect]
     Active Substance: SODIUM OXYBATE
     Indication: HYPERSOMNIA
     Dosage: 2.25 G, BID
     Route: 048
     Dates: start: 20170124, end: 2017

REACTIONS (10)
  - Escherichia infection [Unknown]
  - Abdominal discomfort [Unknown]
  - Headache [Recovering/Resolving]
  - Urinary tract infection [Unknown]
  - Malaise [Unknown]
  - Product preparation error [Unknown]
  - Feeling jittery [Unknown]
  - Hypoaesthesia [Unknown]
  - Pruritus [Unknown]
  - Constipation [Unknown]
